FAERS Safety Report 6585173-7 (Version None)
Quarter: 2010Q1

REPORT INFORMATION
  Report Type: 
  Country: None (occurrence: None)
  Receive Date: 20100217
  Receipt Date: 20100208
  Transmission Date: 20100710
  Serious: Yes (Other)
  Sender: FDA-Public Use
  Company Number: DE-ROCHE-685316

PATIENT
  Sex: Female

DRUGS (1)
  1. AVASTIN [Suspect]
     Indication: BREAST CANCER
     Dosage: LAST ADMINISTRATION PRIOR TO THE EVENT ON 25 JAN 2010
     Route: 065

REACTIONS (1)
  - AORTIC ANEURYSM [None]
